FAERS Safety Report 6377370-0 (Version None)
Quarter: 2009Q3

REPORT INFORMATION
  Report Type: 
  Country: None (occurrence: None)
  Receive Date: 20090925
  Receipt Date: 20090921
  Transmission Date: 20100115
  Serious: Yes (Death, Hospitalization)
  Sender: FDA-Public Use
  Company Number: US-ABBOTT-09P-163-0598356-00

PATIENT
  Sex: Female
  Weight: 118.04 kg

DRUGS (8)
  1. HUMIRA [Suspect]
     Indication: RHEUMATOID ARTHRITIS
     Dates: start: 20061005, end: 20081001
  2. ENBREL [Suspect]
     Indication: RHEUMATOID ARTHRITIS
     Dates: start: 20080101
  3. ENBREL [Concomitant]
     Dates: start: 20080101
  4. METHOTREXATE [Concomitant]
     Indication: RHEUMATOID ARTHRITIS
  5. HYDROCODONE [Concomitant]
     Indication: PAIN
  6. ADVAIR DISKUS 100/50 [Concomitant]
     Indication: ASTHMA
     Route: 055
  7. LANTUS [Concomitant]
     Indication: DIABETES MELLITUS
  8. INSULIN [Concomitant]
     Indication: DIABETES MELLITUS

REACTIONS (9)
  - DRUG INEFFECTIVE [None]
  - GENERAL PHYSICAL HEALTH DETERIORATION [None]
  - MECHANICAL VENTILATION [None]
  - MOBILITY DECREASED [None]
  - PNEUMONIA [None]
  - PULMONARY MASS [None]
  - RENAL FAILURE ACUTE [None]
  - RESPIRATORY FAILURE [None]
  - STEVENS-JOHNSON SYNDROME [None]
